FAERS Safety Report 12939530 (Version 3)
Quarter: 2017Q1

REPORT INFORMATION
  Report Type: Spontaneous
  Country: JP (occurrence: JP)
  Receive Date: 20161115
  Receipt Date: 20170208
  Transmission Date: 20170428
  Serious: Yes (Hospitalization)
  Sender: FDA-Public Use
  Company Number: JP-009507513-1611JPN002475

PATIENT
  Age: 69 Year
  Sex: Female

DRUGS (17)
  1. REFLEX [Suspect]
     Active Substance: MIRTAZAPINE
     Indication: DEPRESSIVE SYMPTOM
     Dosage: 15 MG, DAILY
     Route: 048
     Dates: start: 20161006, end: 20161012
  2. URAPIDIL [Concomitant]
     Active Substance: URAPIDIL
     Indication: DYSURIA
     Dosage: 30 MG, QD
     Route: 048
     Dates: end: 20161011
  3. MAGNESIUM OXIDE. [Concomitant]
     Active Substance: MAGNESIUM OXIDE
     Indication: CONSTIPATION
     Dosage: DAILY DOSE: 990 MG
     Route: 048
     Dates: end: 20161006
  4. RIVOTRIL [Suspect]
     Active Substance: CLONAZEPAM
     Indication: DEPRESSIVE SYMPTOM
     Dosage: 0.25 MG-DAILY
     Route: 048
     Dates: start: 20161006, end: 20161006
  5. TRAZODONE HYDROCHLORIDE. [Suspect]
     Active Substance: TRAZODONE HYDROCHLORIDE
     Dosage: 25 M (P.R.N)
     Route: 048
     Dates: start: 20161011, end: 20161011
  6. QUETIAPINE FUMARATE. [Concomitant]
     Active Substance: QUETIAPINE FUMARATE
     Indication: ANXIETY
     Dosage: DAILY DOSE: 12.5 MG
     Route: 048
     Dates: end: 20161006
  7. RISPERIDONE. [Concomitant]
     Active Substance: RISPERIDONE
     Indication: RESTLESSNESS
     Dosage: 1 ML (P.R.N)
     Route: 048
     Dates: start: 20161012
  8. FLUNITRAZEPAM [Concomitant]
     Active Substance: FLUNITRAZEPAM
     Indication: INSOMNIA
     Dosage: 2 MG, QD
     Route: 065
     Dates: end: 20161006
  9. ZOLPIDEM TARTRATE. [Concomitant]
     Active Substance: ZOLPIDEM TARTRATE
     Indication: SLEEP DISORDER
     Dosage: 10 MG, QD
     Route: 048
     Dates: end: 20161006
  10. TRAZODONE HYDROCHLORIDE. [Suspect]
     Active Substance: TRAZODONE HYDROCHLORIDE
     Indication: INSOMNIA
     Dosage: 25 MG (P.R.N)
     Route: 048
     Dates: start: 20161006, end: 20161006
  11. SULPIRIDE [Concomitant]
     Active Substance: SULPIRIDE
     Indication: DEPRESSION
     Dosage: 60 MG, UNK
     Route: 048
     Dates: end: 20161006
  12. RIVOTRIL [Suspect]
     Active Substance: CLONAZEPAM
     Dosage: 0.5 MG-DAILY
     Route: 048
     Dates: start: 20161007, end: 20161011
  13. TRAZODONE HYDROCHLORIDE. [Suspect]
     Active Substance: TRAZODONE HYDROCHLORIDE
     Dosage: 25 MG (P.R.N)
     Route: 048
     Dates: start: 20161007, end: 20161007
  14. MAGNESIUM OXIDE. [Concomitant]
     Active Substance: MAGNESIUM OXIDE
     Dosage: DAOLY DOSE: 1 G
     Route: 048
     Dates: start: 20161006, end: 20161011
  15. TRAZODONE HYDROCHLORIDE. [Suspect]
     Active Substance: TRAZODONE HYDROCHLORIDE
     Dosage: 25 MG (P.R.N)
     Route: 048
     Dates: start: 20161009, end: 20161009
  16. METOCLOPRAMIDE. [Concomitant]
     Active Substance: METOCLOPRAMIDE
     Indication: NAUSEA
     Dosage: 5 MG  (P.R.N)
     Route: 048
     Dates: start: 20161008
  17. QUETIAPINE FUMARATE. [Concomitant]
     Active Substance: QUETIAPINE FUMARATE
     Indication: IRRITABILITY

REACTIONS (2)
  - Parkinsonism [Recovered/Resolved]
  - Delirium [Recovered/Resolved]

NARRATIVE: CASE EVENT DATE: 20161009
